FAERS Safety Report 6610304-X (Version None)
Quarter: 2010Q1

REPORT INFORMATION
  Report Type: 
  Country: None (occurrence: None)
  Receive Date: 20100302
  Receipt Date: 20100225
  Transmission Date: 20100710
  Serious: Yes (Life-Threatening, Hospitalization)
  Sender: FDA-Public Use
  Company Number: US-GENENTECH-298621

PATIENT
  Sex: Female
  Weight: 57.5 kg

DRUGS (8)
  1. RITUXIMAB [Suspect]
     Indication: MANTLE CELL LYMPHOMA
     Dosage: UNK
  2. VELCADE [Suspect]
     Indication: MANTLE CELL LYMPHOMA
     Dosage: 1.7 MG, UNK
     Route: 042
     Dates: start: 20100104, end: 20100111
  3. CYCLOPHOSPHAMIDE [Suspect]
     Indication: MANTLE CELL LYMPHOMA
  4. VINCRISTINE [Suspect]
     Indication: MANTLE CELL LYMPHOMA
  5. DOXORUBICIN HCL [Suspect]
     Indication: MANTLE CELL LYMPHOMA
  6. DEXAMETHASONE [Suspect]
     Indication: MANTLE CELL LYMPHOMA
  7. METHOTREXATE [Suspect]
     Indication: MANTLE CELL LYMPHOMA
  8. CYTARABINE [Suspect]
     Indication: MANTLE CELL LYMPHOMA

REACTIONS (3)
  - ACUTE RESPIRATORY FAILURE [None]
  - FEBRILE NEUTROPENIA [None]
  - PNEUMONIA [None]
